FAERS Safety Report 12155425 (Version 3)
Quarter: 2016Q1

REPORT INFORMATION
  Report Type: Spontaneous
  Country: BE (occurrence: BE)
  Receive Date: 20160307
  Receipt Date: 20160314
  Transmission Date: 20160526
  Serious: Yes (Other)
  Sender: FDA-Public Use
  Company Number: BE-JNJFOC-20160225643

PATIENT
  Age: 39 Year
  Sex: Male

DRUGS (1)
  1. HALDOL [Suspect]
     Active Substance: HALOPERIDOL
     Indication: PRODUCT USED FOR UNKNOWN INDICATION
     Route: 065

REACTIONS (6)
  - Epilepsy [Unknown]
  - Vertigo [Unknown]
  - Hypersensitivity [Unknown]
  - Ejaculation failure [Unknown]
  - Dizziness [Unknown]
  - Head discomfort [Unknown]
